FAERS Safety Report 22931209 (Version 23)
Quarter: 2025Q1

REPORT INFORMATION
  Report Type: Spontaneous
  Country: IN (occurrence: IN)
  Receive Date: 20230911
  Receipt Date: 20250113
  Transmission Date: 20250408
  Serious: Yes (Hospitalization, Other)
  Sender: PFIZER
  Company Number: IN-PFIZER INC-PV202300141619

PATIENT
  Age: 70 Year
  Sex: Male

DRUGS (16)
  1. LORLATINIB [Suspect]
     Active Substance: LORLATINIB
     Indication: Lung neoplasm malignant
     Dates: start: 20230813
  2. LORLATINIB [Suspect]
     Active Substance: LORLATINIB
     Dosage: 75 MG, 1X/DAY
     Route: 048
     Dates: start: 20230813
  3. LORLATINIB [Suspect]
     Active Substance: LORLATINIB
     Dosage: 100 MG, 1X/DAY
     Route: 048
  4. LORLATINIB [Suspect]
     Active Substance: LORLATINIB
     Dosage: 75 MG, 1X/DAY
     Route: 048
  5. CERITINIB [Concomitant]
     Active Substance: CERITINIB
     Dates: start: 202206
  6. DENOSUMAB [Concomitant]
     Active Substance: DENOSUMAB
     Dates: start: 202210
  7. CALCIUM CARBONATE\CHOLECALCIFEROL [Concomitant]
     Active Substance: CALCIUM CARBONATE\CHOLECALCIFEROL
  8. D RISE [Concomitant]
     Dosage: 60000 IU, MONTHLY
  9. ASPIRIN\ATORVASTATIN [Concomitant]
     Active Substance: ASPIRIN\ATORVASTATIN
  10. INSULIN ASPART [Concomitant]
     Active Substance: INSULIN ASPART
  11. AMARYL [Concomitant]
     Active Substance: GLIMEPIRIDE
  12. METFORMIN HYDROCHLORIDE [Concomitant]
     Active Substance: METFORMIN HYDROCHLORIDE
  13. LEVOTHYROXINE [Concomitant]
     Active Substance: LEVOTHYROXINE
  14. MINIPRESS [Concomitant]
     Active Substance: PRAZOSIN HYDROCHLORIDE
  15. TELMA CT [Concomitant]
  16. APLEVANT [Concomitant]
     Indication: Weight abnormal

REACTIONS (65)
  - Abdominal distension [Recovered/Resolved]
  - Abdominal pain upper [Recovered/Resolved]
  - Cholecystitis [Unknown]
  - Klebsiella urinary tract infection [Unknown]
  - Pollakiuria [Unknown]
  - Hallucination, visual [Recovering/Resolving]
  - Lower respiratory tract infection [Unknown]
  - Blood pressure systolic increased [Unknown]
  - Nerve block [Not Recovered/Not Resolved]
  - Toe operation [Not Recovered/Not Resolved]
  - Blood thyroid stimulating hormone increased [Unknown]
  - Hypoaesthesia [Not Recovered/Not Resolved]
  - Somnolence [Recovering/Resolving]
  - Laboratory test abnormal [Unknown]
  - Haemoglobin decreased [Unknown]
  - Protein urine present [Unknown]
  - Oxygen saturation decreased [Unknown]
  - Glucose urine present [Unknown]
  - Pyrexia [Unknown]
  - Ischaemia [Unknown]
  - Respiratory disorder [Unknown]
  - Cough [Recovered/Resolved]
  - Wheezing [Unknown]
  - Weight increased [Not Recovered/Not Resolved]
  - Thyroid function test abnormal [Unknown]
  - Illness [Recovered/Resolved]
  - Snoring [Recovered/Resolved]
  - Blood glucose increased [Unknown]
  - Blood creatinine increased [Unknown]
  - White blood cells urine positive [Unknown]
  - Blood uric acid increased [Unknown]
  - Peripheral swelling [Recovered/Resolved]
  - Anxiety [Unknown]
  - Gastrointestinal disorder [Unknown]
  - Oedema [Unknown]
  - Fatigue [Not Recovered/Not Resolved]
  - Neoplasm progression [Not Recovered/Not Resolved]
  - Dyslipidaemia [Unknown]
  - Urinary tract infection [Unknown]
  - Hypercholesterolaemia [Unknown]
  - Citrobacter test positive [Unknown]
  - Hypersomnia [Not Recovered/Not Resolved]
  - Nasopharyngitis [Not Recovered/Not Resolved]
  - Insomnia [Recovered/Resolved]
  - Skin lesion [Not Recovered/Not Resolved]
  - Skin laxity [Not Recovered/Not Resolved]
  - Pain in extremity [Not Recovered/Not Resolved]
  - Constipation [Recovering/Resolving]
  - Gait disturbance [Recovering/Resolving]
  - Poor peripheral circulation [Not Recovered/Not Resolved]
  - Asthenia [Recovering/Resolving]
  - Weight decreased [Not Recovered/Not Resolved]
  - Musculoskeletal stiffness [Not Recovered/Not Resolved]
  - Sensory loss [Not Recovered/Not Resolved]
  - Musculoskeletal disorder [Not Recovered/Not Resolved]
  - Skin discolouration [Not Recovered/Not Resolved]
  - Blood triglycerides increased [Unknown]
  - Low density lipoprotein increased [Unknown]
  - Mobility decreased [Unknown]
  - Dysstasia [Unknown]
  - Muscular weakness [Unknown]
  - Peripheral venous disease [Unknown]
  - Fall [Unknown]
  - Pruritus [Unknown]
  - Abdominal pain [Unknown]

NARRATIVE: CASE EVENT DATE: 20231018
